FAERS Safety Report 17262662 (Version 1)
Quarter: 2020Q1

REPORT INFORMATION
  Report Type: Spontaneous
  Country: US (occurrence: US)
  Receive Date: 20200113
  Receipt Date: 20200113
  Transmission Date: 20200409
  Serious: No
  Sender: FDA-Public Use
  Company Number: US-PFIZER INC-2020014750

PATIENT
  Age: 94 Year
  Sex: Male
  Weight: 68.48 kg

DRUGS (1)
  1. XALKORI [Suspect]
     Active Substance: CRIZOTINIB
     Indication: LUNG NEOPLASM MALIGNANT
     Dosage: 250 MG, 2X/DAY (Q 12HRS)
     Route: 048
     Dates: start: 20200103

REACTIONS (1)
  - Constipation [Unknown]
